FAERS Safety Report 9892603 (Version 1)
Quarter: 2014Q1

REPORT INFORMATION
  Report Type: Spontaneous
  Country: US (occurrence: US)
  Receive Date: 20140212
  Receipt Date: 20140212
  Transmission Date: 20141002
  Serious: Yes (Disabling)
  Sender: FDA-Public Use
  Company Number: US-LUNDBECK-DKLU1097310

PATIENT
  Age: 11 Year
  Sex: Male

DRUGS (1)
  1. SABRIL (TABLET) [Suspect]
     Indication: ENCEPHALOPATHY
     Route: 048
     Dates: start: 20110107

REACTIONS (1)
  - Blindness [Unknown]
